FAERS Safety Report 6506426-4 (Version None)
Quarter: 2009Q4

REPORT INFORMATION
  Report Type: 
  Country: None (occurrence: None)
  Receive Date: 20091221
  Receipt Date: 20091210
  Transmission Date: 20100525
  Serious: Yes (Hospitalization)
  Sender: FDA-Public Use
  Company Number: US-RB-026676-09

PATIENT
  Sex: Male

DRUGS (1)
  1. SUBOXONE [Suspect]
     Route: 060
     Dates: start: 20080101, end: 20091110

REACTIONS (2)
  - CHOLECYSTITIS [None]
  - PNEUMONIA [None]
